FAERS Safety Report 8701869 (Version 2)
Quarter: 2013Q4

REPORT INFORMATION
  Report Type: Report from Study
  Country: US (occurrence: US)
  Receive Date: 20120803
  Receipt Date: 20131106
  Transmission Date: 20140711
  Serious: Yes (Other)
  Sender: FDA-Public Use
  Company Number: US-009507513-1207USA009052

PATIENT
  Age: 61 Year
  Sex: Female
  Weight: 97.1 kg

DRUGS (3)
  1. VICTRELIS [Suspect]
     Dosage: 4 DF, TID
  2. REBETOL [Suspect]
     Dosage: 600 MG, QD
  3. PEGASYS [Suspect]
     Indication: HEPATITIS C
     Dosage: 180 MICROGRAM, UNK

REACTIONS (1)
  - Pulmonary embolism [Unknown]
